FAERS Safety Report 23672045 (Version 1)
Quarter: 2024Q1

REPORT INFORMATION
  Report Type: Spontaneous
  Country: HR (occurrence: HR)
  Receive Date: 20240326
  Receipt Date: 20240326
  Transmission Date: 20240409
  Serious: Yes (Hospitalization, Disabling)
  Sender: FDA-Public Use
  Company Number: None

PATIENT
  Age: 67 Year
  Sex: Male
  Weight: 77 kg

DRUGS (5)
  1. TOCILIZUMAB [Suspect]
     Active Substance: TOCILIZUMAB
     Indication: Rheumatoid arthritis
     Dosage: DRUG STRENGTH 162 MG, DOSING ONCE A WEEK
     Route: 058
     Dates: start: 20161007, end: 202302
  2. ACETAMINOPHEN\TRAMADOL HYDROCHLORIDE [Concomitant]
     Active Substance: ACETAMINOPHEN\TRAMADOL HYDROCHLORIDE
     Dosage: SVAKI DRUGI DAN
  3. LACIDIPINE [Concomitant]
     Active Substance: LACIDIPINE
  4. ARAVA [Concomitant]
     Active Substance: LEFLUNOMIDE
  5. MOXONIDINE [Concomitant]
     Active Substance: MOXONIDINE

REACTIONS (2)
  - Parkinsonism [Unknown]
  - Dementia [Unknown]

NARRATIVE: CASE EVENT DATE: 20211101
